FAERS Safety Report 18022980 (Version 3)
Quarter: 2021Q2

REPORT INFORMATION
  Report Type: Spontaneous
  Country: US (occurrence: US)
  Receive Date: 20200714
  Receipt Date: 20210629
  Transmission Date: 20210717
  Serious: Yes (Hospitalization)
  Sender: FDA-Public Use
  Company Number: US-TEVA-2020-US-1799947

PATIENT
  Age: 46 Year
  Sex: Male

DRUGS (27)
  1. BUDESONIDE. [Suspect]
     Active Substance: BUDESONIDE
     Indication: PROPHYLAXIS AGAINST GRAFT VERSUS HOST DISEASE
     Dosage: DAY 43 TO DAY 46
     Route: 065
  2. METHOTREXATE. [Suspect]
     Active Substance: METHOTREXATE
     Indication: MYELODYSPLASTIC SYNDROME
     Dosage: DAY 10, 14 AND 19
     Route: 065
  3. PREDNISONE. [Suspect]
     Active Substance: PREDNISONE
     Indication: GRAFT VERSUS HOST DISEASE IN GASTROINTESTINAL TRACT
  4. TACROLIMUS. [Suspect]
     Active Substance: TACROLIMUS
     Indication: PROPHYLAXIS AGAINST GRAFT VERSUS HOST DISEASE
     Dosage: DAY 8 TO DAY 59
     Route: 065
  5. AZACITIDINE. [Suspect]
     Active Substance: AZACITIDINE
     Indication: MYELOFIBROSIS
  6. BECLOMETASONE [Suspect]
     Active Substance: BECLOMETHASONE DIPROPIONATE
     Indication: PROPHYLAXIS AGAINST GRAFT VERSUS HOST DISEASE
     Dosage: DAY 47 TO DAY 59
     Route: 065
  7. CYCLOPHOSPHAMIDE. [Suspect]
     Active Substance: CYCLOPHOSPHAMIDE
     Indication: MYELODYSPLASTIC SYNDROME
     Dosage: DAY 0 TO DAY 8
     Route: 065
  8. CYCLOPHOSPHAMIDE. [Suspect]
     Active Substance: CYCLOPHOSPHAMIDE
     Indication: MYELOFIBROSIS
  9. COTRIMOXAZOLE [Suspect]
     Active Substance: SULFAMETHOXAZOLE\TRIMETHOPRIM
     Indication: ANTIBIOTIC THERAPY
     Dosage: DAY 50 TO DAY 59
     Route: 065
  10. VANCOMYCIN [Suspect]
     Active Substance: VANCOMYCIN
     Indication: ANTIBIOTIC THERAPY
     Dosage: DAY 16 TO DAY 27 AND DAY 33 TO DAY 35
     Route: 065
  11. BUDESONIDE. [Suspect]
     Active Substance: BUDESONIDE
     Indication: GRAFT VERSUS HOST DISEASE IN GASTROINTESTINAL TRACT
  12. BUSULFAN. [Suspect]
     Active Substance: BUSULFAN
     Indication: MYELODYSPLASTIC SYNDROME
     Dosage: DAY 0 TO DAY 8
     Route: 065
  13. PREDNISONE. [Suspect]
     Active Substance: PREDNISONE
     Indication: PROPHYLAXIS AGAINST GRAFT VERSUS HOST DISEASE
     Dosage: DAY 15 TO DAY 40
     Route: 065
  14. MEROPENEM. [Suspect]
     Active Substance: MEROPENEM
     Indication: ANTIBIOTIC THERAPY
     Dosage: DAY 23 TO DAY 36
     Route: 065
  15. ACYCLOVIR. [Concomitant]
     Active Substance: ACYCLOVIR
     Indication: PRODUCT USED FOR UNKNOWN INDICATION
     Dosage: DAY 9 TO DAY 59
     Route: 065
  16. BUSULFAN. [Suspect]
     Active Substance: BUSULFAN
     Indication: MYELOFIBROSIS
  17. METHYLPREDNISOLONE. [Suspect]
     Active Substance: METHYLPREDNISOLONE
     Indication: GRAFT VERSUS HOST DISEASE IN GASTROINTESTINAL TRACT
  18. METHOTREXATE. [Suspect]
     Active Substance: METHOTREXATE
     Indication: MYELOFIBROSIS
  19. BECLOMETASONE [Suspect]
     Active Substance: BECLOMETHASONE DIPROPIONATE
     Indication: GRAFT VERSUS HOST DISEASE IN GASTROINTESTINAL TRACT
  20. VORICONAZOLE. [Concomitant]
     Active Substance: VORICONAZOLE
     Indication: PRODUCT USED FOR UNKNOWN INDICATION
     Dosage: DAY 23 TO DAY 59
     Route: 065
  21. CIPROFLOXACIN. [Suspect]
     Active Substance: CIPROFLOXACIN
     Indication: ANTIBIOTIC THERAPY
     Dosage: DAY 0 TO DAY 29
     Route: 065
  22. METHYLPREDNISOLONE. [Suspect]
     Active Substance: METHYLPREDNISOLONE
     Indication: PROPHYLAXIS AGAINST GRAFT VERSUS HOST DISEASE
     Dosage: DAY 41 TO DAY 59
     Route: 065
  23. CEFEPIME [Suspect]
     Active Substance: CEFEPIME HYDROCHLORIDE
     Indication: ANTIBIOTIC THERAPY
     Dosage: DAY 15 TO DAY 22
     Route: 065
  24. TACROLIMUS. [Suspect]
     Active Substance: TACROLIMUS
     Indication: GRAFT VERSUS HOST DISEASE IN GASTROINTESTINAL TRACT
  25. AZACITIDINE. [Suspect]
     Active Substance: AZACITIDINE
     Indication: MYELODYSPLASTIC SYNDROME
     Route: 065
  26. FLUCONAZOLE. [Concomitant]
     Active Substance: FLUCONAZOLE
     Indication: PRODUCT USED FOR UNKNOWN INDICATION
     Dosage: DAY 15 TO DAY 22 AND DAY 28 TO DAY 36
     Route: 065
  27. FLUCONAZOLE. [Concomitant]
     Active Substance: FLUCONAZOLE
     Indication: PRODUCT USED FOR UNKNOWN INDICATION
     Dosage: DAY 15 TO DAY 24
     Route: 065

REACTIONS (3)
  - Drug ineffective [Unknown]
  - Diarrhoea [Unknown]
  - Dysbiosis [Unknown]
